FAERS Safety Report 21740647 (Version 7)
Quarter: 2023Q1

REPORT INFORMATION
  Report Type: Spontaneous
  Country: JP (occurrence: JP)
  Receive Date: 20221216
  Receipt Date: 20230313
  Transmission Date: 20230417
  Serious: Yes (Hospitalization)
  Sender: FDA-Public Use
  Company Number: JP-ABBVIE-4239622

PATIENT
  Age: 21 Year
  Sex: Female
  Weight: 49 kg

DRUGS (8)
  1. RINVOQ [Suspect]
     Active Substance: UPADACITINIB
     Indication: Colitis ulcerative
     Dosage: FORM STRENGTH-45 MILLIGRAM
     Route: 048
     Dates: start: 20221213, end: 20221215
  2. PREDNISOLONE [Suspect]
     Active Substance: PREDNISOLONE
     Indication: Colitis ulcerative
     Dosage: 2 MILLIGRAM
     Route: 048
     Dates: start: 20221206, end: 20230110
  3. PREDNISOLONE [Suspect]
     Active Substance: PREDNISOLONE
     Indication: Colitis ulcerative
     Route: 048
  4. PREDNISOLONE [Suspect]
     Active Substance: PREDNISOLONE
     Indication: Colitis ulcerative
     Dosage: 7 MILLIGRAM
     Route: 048
     Dates: start: 20220822
  5. ASPIRIN [Concomitant]
     Active Substance: ASPIRIN
     Indication: Gastrooesophageal reflux disease
     Dosage: 20 MILLIGRAM
     Route: 048
     Dates: start: 20220822, end: 20230110
  6. ALENDRONATE SODIUM [Concomitant]
     Active Substance: ALENDRONATE SODIUM
     Indication: Osteoporosis
     Dosage: 35 MILLIGRAM
     Route: 048
     Dates: start: 20220822, end: 20230110
  7. ACETAMINOPHEN [Concomitant]
     Active Substance: ACETAMINOPHEN
     Indication: Colitis ulcerative
     Route: 048
  8. VONOPRAZAN [Concomitant]
     Active Substance: VONOPRAZAN
     Indication: Gastrooesophageal reflux disease
     Dosage: 20 MILLIGRAM
     Route: 048
     Dates: start: 20220822, end: 20230110

REACTIONS (4)
  - Swelling face [Recovering/Resolving]
  - Tongue oedema [Recovering/Resolving]
  - Drug hypersensitivity [Unknown]
  - Acne [Recovering/Resolving]

NARRATIVE: CASE EVENT DATE: 20221215
